FAERS Safety Report 13348377 (Version 1)
Quarter: 2017Q1

REPORT INFORMATION
  Report Type: Report from Study
  Country: US (occurrence: US)
  Receive Date: 20170320
  Receipt Date: 20170320
  Transmission Date: 20170428
  Serious: Yes (Hospitalization)
  Sender: FDA-Public Use
  Company Number: US-ROCHE-1907085

PATIENT
  Age: 61 Year
  Sex: Male
  Weight: 81.7 kg

DRUGS (6)
  1. KEPPRA [Concomitant]
     Active Substance: LEVETIRACETAM
  2. SINGULAIR [Concomitant]
     Active Substance: MONTELUKAST SODIUM
  3. FLUTICASONE FUROATE [Concomitant]
     Active Substance: FLUTICASONE FUROATE
  4. VILANTEROL [Concomitant]
  5. BEVACIZUMAB [Suspect]
     Active Substance: BEVACIZUMAB
     Indication: MENINGIOMA
     Dosage: LAST DOSE PRIOR TO SERIOUS ADVERSE EVENT: 21/SEP/2016?CYCLE 35
     Route: 042
     Dates: start: 20121220
  6. ATORVASTATIN [Concomitant]
     Active Substance: ATORVASTATIN

REACTIONS (2)
  - Nervous system disorder [Recovered/Resolved]
  - Asthenia [Not Recovered/Not Resolved]

NARRATIVE: CASE EVENT DATE: 20160922
